FAERS Safety Report 5635655-7 (Version None)
Quarter: 2008Q1

REPORT INFORMATION
  Report Type: 
  Country: None (occurrence: None)
  Receive Date: 20080220
  Receipt Date: 20080211
  Transmission Date: 20080703
  Serious: Yes (Other)
  Sender: FDA-Public Use
  Company Number: 2008003704

PATIENT
  Sex: Male

DRUGS (1)
  1. REACTINE (CETIRIZINE HYDROCHLORIDE) [Suspect]
     Dosage: DAILY, ORAL
     Route: 048

REACTIONS (1)
  - OSTEOPOROSIS [None]
